FAERS Safety Report 12306212 (Version 2)
Quarter: 2016Q2

REPORT INFORMATION
  Report Type: Spontaneous
  Country: US (occurrence: US)
  Receive Date: 20160426
  Receipt Date: 20160519
  Transmission Date: 20160815
  Serious: No
  Sender: FDA-Public Use
  Company Number: US-PFIZER INC-2016229913

PATIENT
  Age: 65 Year
  Sex: Female
  Weight: 60.78 kg

DRUGS (5)
  1. LYRICA [Suspect]
     Active Substance: PREGABALIN
     Indication: FIBROMYALGIA
     Dosage: 50 MG, 2X/DAY
     Route: 048
     Dates: start: 20160420
  2. DONEPEZIL. [Concomitant]
     Active Substance: DONEPEZIL
     Indication: MEMORY IMPAIRMENT
     Dosage: 10 MG, DAILY
  3. LYRICA [Suspect]
     Active Substance: PREGABALIN
     Indication: PARAESTHESIA
  4. LYRICA [Suspect]
     Active Substance: PREGABALIN
     Indication: BURNING SENSATION
  5. REQUIP [Concomitant]
     Active Substance: ROPINIROLE HYDROCHLORIDE
     Indication: RESTLESS LEGS SYNDROME
     Dosage: 4 MG, 1X/DAY
     Route: 048

REACTIONS (4)
  - Drug dose omission [Unknown]
  - Somnolence [Unknown]
  - Nightmare [Not Recovered/Not Resolved]
  - Abnormal dreams [Not Recovered/Not Resolved]

NARRATIVE: CASE EVENT DATE: 20160421
